FAERS Safety Report 21082686 (Version 1)
Quarter: 2022Q3

REPORT INFORMATION
  Report Type: Spontaneous
  Country: CN (occurrence: CN)
  Receive Date: 20220714
  Receipt Date: 20220714
  Transmission Date: 20221027
  Serious: Yes (Other)
  Sender: FDA-Public Use
  Company Number: CN-BAYER-2022A097474

PATIENT
  Age: 41 Year
  Sex: Male
  Weight: 70 kg

DRUGS (1)
  1. STIVARGA [Suspect]
     Active Substance: REGORAFENIB
     Indication: Neoplasm malignant
     Dosage: 120 MG, QD
     Route: 048
     Dates: start: 20220505, end: 20220711

REACTIONS (4)
  - Recurrent cancer [None]
  - Gastrointestinal disorder [Unknown]
  - Alanine aminotransferase increased [Unknown]
  - Off label use [None]

NARRATIVE: CASE EVENT DATE: 20220505
